FAERS Safety Report 18077489 (Version 2)
Quarter: 2020Q3

REPORT INFORMATION
  Report Type: Spontaneous
  Country: IT (occurrence: IT)
  Receive Date: 20200728
  Receipt Date: 20200826
  Transmission Date: 20201103
  Serious: Yes (Other)
  Sender: FDA-Public Use
  Company Number: IT-009507513-2007ITA009750

PATIENT
  Age: 67 Year
  Sex: Male

DRUGS (1)
  1. PEMBROLIZUMAB. [Suspect]
     Active Substance: PEMBROLIZUMAB
     Indication: ADENOSQUAMOUS CELL LUNG CANCER
     Dosage: 200 MILLIGRAM, CYCLICAL
     Route: 042
     Dates: start: 20190522, end: 20200717

REACTIONS (1)
  - Hypothyroidism [Recovered/Resolved with Sequelae]

NARRATIVE: CASE EVENT DATE: 20191003
